FAERS Safety Report 5365326-6 (Version None)
Quarter: 2007Q2

REPORT INFORMATION
  Report Type: 
  Country: None (occurrence: None)
  Receive Date: 20070621
  Receipt Date: 20070618
  Transmission Date: 20071010
  Serious: Yes (Hospitalization)
  Sender: FDA-Public Use
  Company Number: FRWYE885920JUN07

PATIENT
  Age: 15 Year
  Sex: Female

DRUGS (2)
  1. ADVIL [Suspect]
     Route: 048
     Dates: start: 20070425, end: 20070426
  2. DOLIPRANE [Concomitant]
     Dosage: UNKNOWN
     Dates: start: 20070425

REACTIONS (7)
  - BILIRUBIN CONJUGATED INCREASED [None]
  - BLOOD ALKALINE PHOSPHATASE INCREASED [None]
  - BLOOD BILIRUBIN INCREASED [None]
  - GAMMA-GLUTAMYLTRANSFERASE INCREASED [None]
  - PNEUMONIA PNEUMOCOCCAL [None]
  - PYELONEPHRITIS [None]
  - TRANSAMINASES INCREASED [None]
